FAERS Safety Report 9008942 (Version 3)
Quarter: 2013Q4

REPORT INFORMATION
  Report Type: Report from Study
  Country: US (occurrence: US)
  Receive Date: 20130111
  Receipt Date: 20131114
  Transmission Date: 20140711
  Serious: Yes (Other)
  Sender: FDA-Public Use
  Company Number: US-US-EMD SERONO, INC.-7185822

PATIENT
  Age: 48 Year
  Sex: Female

DRUGS (3)
  1. REBIF [Suspect]
     Indication: MULTIPLE SCLEROSIS
     Route: 058
     Dates: start: 20070803
  2. CELEBREX [Concomitant]
     Indication: ARTHRITIS
  3. OXYCONTIN [Concomitant]
     Indication: PRODUCT USED FOR UNKNOWN INDICATION

REACTIONS (6)
  - Osteoarthritis [Recovering/Resolving]
  - Scar excision [Recovering/Resolving]
  - Arthropathy [Not Recovered/Not Resolved]
  - Synovial cyst [Not Recovered/Not Resolved]
  - Injection site haemorrhage [Unknown]
  - Injection site discomfort [Not Recovered/Not Resolved]
